FAERS Safety Report 6200506-9 (Version None)
Quarter: 2009Q2

REPORT INFORMATION
  Report Type: 
  Country: None (occurrence: None)
  Receive Date: 20090522
  Receipt Date: 20090514
  Transmission Date: 20091009
  Serious: Yes (Other)
  Sender: FDA-Public Use
  Company Number: BE-AMGEN-UK346192

PATIENT
  Age: 81 Year
  Sex: Female
  Weight: 70 kg

DRUGS (1)
  1. VECTIBIX [Suspect]
     Indication: COLORECTAL CANCER
     Route: 041
     Dates: start: 20090403

REACTIONS (20)
  - ALOPECIA [None]
  - ASTHENIA [None]
  - COUGH [None]
  - DEHYDRATION [None]
  - DIARRHOEA [None]
  - DYSPNOEA [None]
  - EYE INFLAMMATION [None]
  - EYE SWELLING [None]
  - HEADACHE [None]
  - HYPERTRICHOSIS [None]
  - HYPOCALCAEMIA [None]
  - HYPOKALAEMIA [None]
  - HYPOMAGNESAEMIA [None]
  - INFUSION RELATED REACTION [None]
  - ONYCHOLYSIS [None]
  - PULMONARY EMBOLISM [None]
  - SKIN REACTION [None]
  - STOMATITIS [None]
  - TUMOUR MARKER TEST [None]
  - VOMITING [None]
